FAERS Safety Report 22824834 (Version 2)
Quarter: 2023Q4

REPORT INFORMATION
  Report Type: Report from Study
  Country: US (occurrence: US)
  Receive Date: 20230815
  Receipt Date: 20231114
  Transmission Date: 20240110
  Serious: Yes (Other)
  Sender: FDA-Public Use
  Company Number: US-ABBVIE-5366078

PATIENT
  Sex: Female
  Weight: 98 kg

DRUGS (1)
  1. SKYRIZI [Suspect]
     Active Substance: RISANKIZUMAB-RZAA
     Indication: Psoriasis
     Dosage: FORM STRENGTH-150 MILLIGRAM
     Route: 058
     Dates: start: 20210514

REACTIONS (2)
  - Goitre [Recovering/Resolving]
  - Drug ineffective [Unknown]
